FAERS Safety Report 9567966 (Version 1)
Quarter: 2013Q3

REPORT INFORMATION
  Report Type: Spontaneous
  Country: US (occurrence: US)
  Receive Date: 20130930
  Receipt Date: 20130930
  Transmission Date: 20140515
  Serious: No
  Sender: FDA-Public Use
  Company Number: US-AMGEN-USASP2013017310

PATIENT
  Age: 76 Year
  Sex: Female
  Weight: 108.84 kg

DRUGS (8)
  1. ENBREL [Suspect]
     Indication: RHEUMATOID ARTHRITIS
     Dosage: 50 MG, QWK
     Route: 058
  2. PRAVASTATIN [Concomitant]
     Dosage: 10 MG, UNK
     Route: 048
  3. PRILOSEC                           /00661201/ [Concomitant]
     Dosage: 20 MG, UNK
     Route: 048
  4. FISH OIL [Concomitant]
     Dosage: UNK
     Route: 048
  5. ALEVE [Concomitant]
     Dosage: 220 MG, UNK
     Route: 048
  6. MULTICAPS [Concomitant]
     Dosage: UNK
     Route: 048
  7. VESICARE [Concomitant]
     Dosage: 5 MG, UNK
     Route: 048
  8. LEVOXYL [Concomitant]
     Dosage: 100 MUG, UNK
     Route: 048

REACTIONS (1)
  - Lower extremity mass [Unknown]
